FAERS Safety Report 21495106 (Version 3)
Quarter: 2022Q4

REPORT INFORMATION
  Report Type: Report from Study
  Country: US (occurrence: US)
  Receive Date: 20221022
  Receipt Date: 20221114
  Transmission Date: 20230113
  Serious: Yes (Other)
  Sender: FDA-Public Use
  Company Number: US-ABBVIE-22K-163-4368722-00

PATIENT
  Age: 51 Year
  Sex: Male

DRUGS (3)
  1. HUMIRA [Suspect]
     Active Substance: ADALIMUMAB
     Indication: Ankylosing spondylitis
     Dosage: HUMIRA 40MG/0.4ML
     Route: 058
     Dates: start: 20210603, end: 20220701
  2. HUMIRA [Suspect]
     Active Substance: ADALIMUMAB
     Dosage: THERAPY START IN 2022 AND DISCONTINUED IN 2022
     Route: 058
  3. PFIZER-BIONTECH COVID-19 VACCINE [Concomitant]
     Active Substance: TOZINAMERAN
     Indication: COVID-19 immunisation
     Dosage: ONE IN ONCE
     Route: 030

REACTIONS (16)
  - Spinal fusion acquired [Recovering/Resolving]
  - Arthralgia [Unknown]
  - Mobility decreased [Not Recovered/Not Resolved]
  - Joint range of motion decreased [Unknown]
  - Injury [Unknown]
  - Drug ineffective [Unknown]
  - Pain [Unknown]
  - Procedural pain [Unknown]
  - Ankylosing spondylitis [Unknown]
  - Methylenetetrahydrofolate reductase gene mutation [Unknown]
  - Bone disorder [Unknown]
  - Arthropathy [Unknown]
  - Colitis ulcerative [Unknown]
  - Chondropathy [Unknown]
  - Ligament disorder [Unknown]
  - Loss of personal independence in daily activities [Not Recovered/Not Resolved]

NARRATIVE: CASE EVENT DATE: 20210601
